FAERS Safety Report 12084573 (Version 1)
Quarter: 2016Q1

REPORT INFORMATION
  Report Type: Spontaneous
  Country: US (occurrence: US)
  Receive Date: 20160217
  Receipt Date: 20160217
  Transmission Date: 20160526
  Serious: No
  Sender: FDA-Public Use
  Company Number: US-VERNALIS THERAPEUTICS, INC.-2016VRN00002

PATIENT
  Sex: Female

DRUGS (2)
  1. TUZISTRA XR [Suspect]
     Active Substance: CHLORPHENIRAMINE MALEATE\CODEINE PHOSPHATE ANHYDROUS
     Dosage: 50 ML, UNK
     Dates: start: 20160117
  2. TUZISTRA XR [Suspect]
     Active Substance: CHLORPHENIRAMINE MALEATE\CODEINE PHOSPHATE ANHYDROUS
     Dosage: UNK
     Dates: start: 20150115

REACTIONS (3)
  - Overdose [Unknown]
  - Medication error [Unknown]
  - Sedation [Unknown]

NARRATIVE: CASE EVENT DATE: 20160115
